FAERS Safety Report 5138157-X (Version None)
Quarter: 2006Q4

REPORT INFORMATION
  Report Type: 
  Country: None (occurrence: None)
  Receive Date: 20061030
  Receipt Date: 20061006
  Transmission Date: 20070319
  Serious: Yes (Hospitalization)
  Sender: FDA-Public Use
  Company Number: IN-JNJFOC-20061001616

PATIENT
  Sex: Male
  Weight: 74 kg

DRUGS (2)
  1. ULTRACET [Suspect]
     Indication: MUSCULOSKELETAL PAIN
     Route: 048
  2. CLONAZEPAM [Concomitant]
     Indication: PANIC ATTACK

REACTIONS (5)
  - DIZZINESS [None]
  - FALL [None]
  - HYPOTENSION [None]
  - PULSE ABNORMAL [None]
  - SYNCOPE [None]
